FAERS Safety Report 7119413-2 (Version None)
Quarter: 2010Q4

REPORT INFORMATION
  Report Type: 
  Country: None (occurrence: None)
  Receive Date: 20101123
  Receipt Date: 20101122
  Transmission Date: 20110411
  Serious: Yes (Hospitalization)
  Sender: FDA-Public Use
  Company Number: US-ROXANE LABORATORIES, INC.-2010-RO-01538RO

PATIENT
  Age: 11 Year
  Sex: Male

DRUGS (1)
  1. CODEINE [Suspect]

REACTIONS (2)
  - HYPERSENSITIVITY [None]
  - VOMITING [None]
